FAERS Safety Report 11714095 (Version 1)
Quarter: 2015Q4

REPORT INFORMATION
  Report Type: Spontaneous
  Country: GB (occurrence: GB)
  Receive Date: 20151109
  Receipt Date: 20151109
  Transmission Date: 20160304
  Serious: Yes (Other)
  Sender: FDA-Public Use
  Company Number: GB-AMGEN-GBRSP2015077709

PATIENT
  Age: 61 Year
  Sex: Male
  Weight: 101 kg

DRUGS (4)
  1. LAXIDO                             /06401201/ [Concomitant]
     Active Substance: POLYETHYLENE GLYCOL 3350\POTASSIUM CHLORIDE\SODIUM BICARBONATE\SODIUM CHLORIDE
     Indication: CONSTIPATION
     Dosage: 2 DF, AS NEEDED (2 SACHETS DAILY AS NEEDED)
     Dates: start: 201311
  2. ASPIRIN                            /00002701/ [Concomitant]
     Active Substance: ASPIRIN
     Indication: HYPERTENSION
     Dosage: 75 MG, 1X/DAY (OD)
     Route: 048
     Dates: start: 201401
  3. ENBREL [Suspect]
     Active Substance: ETANERCEPT
     Indication: PSORIATIC ARTHROPATHY
     Dosage: 50 MG, ONCE A WEEK
     Route: 058
     Dates: start: 20150702, end: 201508
  4. RAMIPRIL. [Concomitant]
     Active Substance: RAMIPRIL
     Indication: HYPERTENSION
     Dosage: 10 MG, 1X/DAY (OD)
     Route: 048
     Dates: start: 201311

REACTIONS (11)
  - Injection site swelling [Unknown]
  - Injection site recall reaction [Unknown]
  - Injection site warmth [Unknown]
  - Injection site pruritus [Unknown]
  - Injection site erythema [Unknown]
  - Contusion [Recovered/Resolved]
  - Injection site haemorrhage [Unknown]
  - Immunosuppression [Unknown]
  - Injection site mass [Recovered/Resolved]
  - Injection site reaction [Not Recovered/Not Resolved]
  - Inflammation [Unknown]

NARRATIVE: CASE EVENT DATE: 2015
